FAERS Safety Report 9571149 (Version 1)
Quarter: 2013Q3

REPORT INFORMATION
  Report Type: Spontaneous
  Country: US (occurrence: None)
  Receive Date: 20130927
  Receipt Date: 20130927
  Transmission Date: 20140515
  Serious: Yes (Other)
  Sender: FDA-Public Use
  Company Number: 2013SA094235

PATIENT
  Sex: Female

DRUGS (1)
  1. ICY HOT [Suspect]
     Indication: MUSCLE STRAIN

REACTIONS (2)
  - Skin discolouration [None]
  - Thermal burn [None]
